FAERS Safety Report 15596228 (Version 2)
Quarter: 2018Q4

REPORT INFORMATION
  Report Type: Spontaneous
  Country: ES (occurrence: ES)
  Receive Date: 20181108
  Receipt Date: 20181116
  Transmission Date: 20190205
  Serious: Yes (Disabling)
  Sender: FDA-Public Use
  Company Number: ES-TEVA-2018-ES-972219

PATIENT
  Age: 58 Year
  Sex: Male

DRUGS (4)
  1. LEUCOVORIN. [Concomitant]
     Active Substance: LEUCOVORIN
     Dosage: 338 MG
     Route: 042
     Dates: start: 20170921, end: 20180130
  2. 5 FLOURACILO [Suspect]
     Active Substance: FLUOROURACIL
     Indication: OESOPHAGEAL ADENOCARCINOMA
     Dosage: 4394 MG X 24 HOURS
     Route: 042
     Dates: start: 20170921, end: 20180131
  3. DOCETAXEL. [Suspect]
     Active Substance: DOCETAXEL
     Indication: OESOPHAGEAL ADENOCARCINOMA
     Dosage: 84 MG (CICLO 5)
     Route: 042
     Dates: start: 20180130, end: 20180130
  4. OXALIPLATINO (7351A) [Suspect]
     Active Substance: OXALIPLATIN
     Indication: OESOPHAGEAL ADENOCARCINOMA
     Dosage: 143 MG?O (7351A)
     Route: 042
     Dates: start: 20170921, end: 20180130

REACTIONS (1)
  - Acute motor-sensory axonal neuropathy [Recovered/Resolved with Sequelae]

NARRATIVE: CASE EVENT DATE: 20180220
